FAERS Safety Report 10273255 (Version 1)
Quarter: 2014Q3

REPORT INFORMATION
  Report Type: Report from Study
  Country: US (occurrence: US)
  Receive Date: 20140702
  Receipt Date: 20140702
  Transmission Date: 20150326
  Serious: Yes (Other)
  Sender: FDA-Public Use
  Company Number: US-ABBVIE-14P-163-1251925-00

PATIENT
  Age: 39 Year
  Sex: Female
  Weight: 48.12 kg

DRUGS (5)
  1. HUMIRA [Suspect]
     Active Substance: ADALIMUMAB
     Indication: CROHN^S DISEASE
     Dates: start: 20140610, end: 20140610
  2. IMURAN [Concomitant]
     Active Substance: AZATHIOPRINE
     Indication: CROHN^S DISEASE
  3. UNKNOWN ACNE CREAM [Suspect]
     Active Substance: UNSPECIFIED INGREDIENT
     Indication: ACNE
  4. PREDNISONE. [Concomitant]
     Active Substance: PREDNISONE
     Indication: CROHN^S DISEASE
  5. HUMIRA [Suspect]
     Active Substance: ADALIMUMAB
     Dates: start: 20140618, end: 20140618

REACTIONS (6)
  - Swelling face [Recovered/Resolved]
  - Dyspnoea [Recovered/Resolved]
  - Drug ineffective [Unknown]
  - Anaphylactic reaction [Recovered/Resolved]
  - Skin discolouration [Recovered/Resolved]
  - Acne [Not Recovered/Not Resolved]

NARRATIVE: CASE EVENT DATE: 20140617
